FAERS Safety Report 4661120-X (Version None)
Quarter: 2005Q2

REPORT INFORMATION
  Report Type: 
  Country: None (occurrence: None)
  Receive Date: 20050511
  Receipt Date: 20050427
  Transmission Date: 20051028
  Serious: Yes (Hospitalization, Disabling)
  Sender: FDA-Public Use
  Company Number: S05-UKI-01325-01

PATIENT
  Age: 66 Year
  Sex: Female

DRUGS (3)
  1. CITALOPRAM HYDROBROMIDE [Suspect]
     Indication: DEPRESSION
     Dosage: 10 MG QD PO
     Route: 048
     Dates: start: 20050310, end: 20050317
  2. RANITIDINE [Concomitant]
  3. ASPIRIN [Concomitant]

REACTIONS (3)
  - DYSKINESIA [None]
  - DYSTONIA [None]
  - TARDIVE DYSKINESIA [None]
